FAERS Safety Report 20026926 (Version 1)
Quarter: 2021Q4

REPORT INFORMATION
  Report Type: Spontaneous
  Country: US (occurrence: US)
  Receive Date: 20211103
  Receipt Date: 20211103
  Transmission Date: 20220303
  Serious: Yes (Death, Hospitalization, Other)
  Sender: FDA-Public Use
  Company Number: US-APOTEX-2021AP045181

PATIENT
  Age: 48 Year
  Sex: Male

DRUGS (1)
  1. ACETAMINOPHEN [Suspect]
     Active Substance: ACETAMINOPHEN
     Indication: Product used for unknown indication
     Dosage: UNK
     Route: 065

REACTIONS (10)
  - Hepatotoxicity [Fatal]
  - Thrombocytopenia [Fatal]
  - Respiratory depression [Fatal]
  - Acute kidney injury [Fatal]
  - Toxicity to various agents [Fatal]
  - Hyperthermia [Fatal]
  - Metabolic acidosis [Fatal]
  - Anion gap [Fatal]
  - Coagulopathy [Fatal]
  - Leukocytosis [Fatal]
